FAERS Safety Report 5689509-0 (Version None)
Quarter: 2008Q1

REPORT INFORMATION
  Report Type: 
  Country: None (occurrence: None)
  Receive Date: 20080328
  Receipt Date: 20080320
  Transmission Date: 20080703
  Serious: Yes (Hospitalization)
  Sender: FDA-Public Use
  Company Number: 2008-01969

PATIENT
  Sex: Male

DRUGS (3)
  1. PREDNISONE TAB [Suspect]
     Dosage: ORAL
     Route: 048
     Dates: start: 20080131
  2. DOCETAXEL [Suspect]
     Indication: PROSTATE CANCER METASTATIC
     Dosage: Q 3 WEEKS, ^CYC IV^, INTRAVENOUS
     Route: 042
  3. DEXAMETHASONE TAB [Suspect]
     Indication: PREMEDICATION
     Dosage: 20 MG, ^CYC^

REACTIONS (1)
  - BRONCHOSPASM [None]
